FAERS Safety Report 25979167 (Version 1)
Quarter: 2025Q4

REPORT INFORMATION
  Report Type: Spontaneous
  Country: US (occurrence: None)
  Receive Date: 20251030
  Receipt Date: 20251030
  Transmission Date: 20260117
  Serious: Yes (Hospitalization)
  Sender: FDA-CTU
  Company Number: None

PATIENT
  Age: 42 Year
  Sex: Male
  Weight: 87.3 kg

DRUGS (1)
  1. CYTARABINE [Suspect]
     Active Substance: CYTARABINE

REACTIONS (7)
  - Eye pain [None]
  - Eye movement disorder [None]
  - Diplopia [None]
  - Eyelid ptosis [None]
  - Rash maculo-papular [None]
  - Febrile neutropenia [None]
  - Escherichia bacteraemia [None]

NARRATIVE: CASE EVENT DATE: 20250922
